FAERS Safety Report 20240150 (Version 1)
Quarter: 2021Q4

REPORT INFORMATION
  Report Type: Spontaneous
  Country: AR (occurrence: AR)
  Receive Date: 20211228
  Receipt Date: 20211228
  Transmission Date: 20220303
  Serious: Yes (Other)
  Sender: FDA-Public Use
  Company Number: AR-PFIZER INC-202101796006

PATIENT
  Sex: Female

DRUGS (1)
  1. CABERGOLINE [Suspect]
     Active Substance: CABERGOLINE
     Indication: Prolactin-producing pituitary tumour
     Dosage: 1 MG, DAILY

REACTIONS (5)
  - Prolactin-producing pituitary tumour [Unknown]
  - Condition aggravated [Unknown]
  - Optic nerve disorder [Unknown]
  - Off label use [Unknown]
  - Maternal exposure during pregnancy [Unknown]
